FAERS Safety Report 5442640-7 (Version None)
Quarter: 2007Q3

REPORT INFORMATION
  Report Type: 
  Country: None (occurrence: None)
  Receive Date: 20070904
  Receipt Date: 20070828
  Transmission Date: 20080115
  Serious: Yes (Other)
  Sender: FDA-Public Use
  Company Number: US-ASTRAZENECA-2007UW20479

PATIENT
  Age: 60 Year
  Sex: Female

DRUGS (1)
  1. MERREM I.V. [Suspect]
     Route: 042

REACTIONS (1)
  - NEPHRITIS INTERSTITIAL [None]
